FAERS Safety Report 12664027 (Version 1)
Quarter: 2016Q3

REPORT INFORMATION
  Report Type: Spontaneous
  Country: US (occurrence: US)
  Receive Date: 20160818
  Receipt Date: 20160818
  Transmission Date: 20161109
  Serious: Yes (Other)
  Sender: FDA-Public Use
  Company Number: US-WEST-WARD PHARMACEUTICALS CORP.-US-H14001-16-01487

PATIENT
  Age: 25 Year
  Sex: Female

DRUGS (6)
  1. INFLIXIMAB [Concomitant]
     Active Substance: INFLIXIMAB
     Indication: UVEITIS
     Route: 042
  2. PREDNISONE. [Suspect]
     Active Substance: PREDNISONE
     Route: 048
  3. PREDNISONE. [Suspect]
     Active Substance: PREDNISONE
     Indication: UVEITIS
     Route: 048
  4. CYCLOSPORIN A [Concomitant]
     Active Substance: CYCLOSPORINE
     Indication: UVEITIS
     Route: 065
  5. MYCOPHENOLATE MOFETIL. [Concomitant]
     Active Substance: MYCOPHENOLATE MOFETIL
     Indication: UVEITIS
     Route: 048
  6. PREDNISONE. [Suspect]
     Active Substance: PREDNISONE
     Indication: GRANULOMA
     Route: 048

REACTIONS (1)
  - Retinal pigment epithelial tear [Unknown]
